FAERS Safety Report 11717735 (Version 1)
Quarter: 2015Q4

REPORT INFORMATION
  Report Type: Spontaneous
  Country: CN (occurrence: CN)
  Receive Date: 20151110
  Receipt Date: 20151110
  Transmission Date: 20160304
  Serious: Yes (Death)
  Sender: FDA-Public Use
  Company Number: CN-CIPLA LTD.-2015CN08456

PATIENT

DRUGS (3)
  1. IRINOTECAN [Suspect]
     Active Substance: IRINOTECAN
     Indication: COLORECTAL CANCER
     Dosage: 180 MG/M2, EVERY TWO WEEKS
     Dates: start: 200907, end: 201101
  2. ATROPINE. [Concomitant]
     Active Substance: ATROPINE
     Indication: CHOLINERGIC SYNDROME
     Dosage: 0.25 MG, UNK
     Route: 065
  3. NIMOTUZUMAB [Suspect]
     Active Substance: NIMOTUZUMAB
     Indication: COLORECTAL CANCER
     Dosage: 400 MG, WEEKLY
     Dates: start: 200907, end: 201101

REACTIONS (1)
  - Death [Fatal]
